FAERS Safety Report 4943308-3 (Version None)
Quarter: 2006Q1

REPORT INFORMATION
  Report Type: 
  Country: None (occurrence: None)
  Receive Date: 20060309
  Receipt Date: 20060228
  Transmission Date: 20060701
  Serious: Yes (Hospitalization)
  Sender: FDA-Public Use
  Company Number: 2006-US-00850

PATIENT
  Age: 31 Year
  Sex: Male

DRUGS (2)
  1. CLOZAPINE TABLETS, 12.5, 25MG, 50 MG 100MG (CLOZAPINE) [Suspect]
     Indication: AGGRESSION
     Dosage: 500 MG, QD, ORAL
     Route: 048
     Dates: start: 20051101, end: 20060104
  2. CLOZAPINE TABLETS, 12.5, 25MG, 50 MG 100MG (CLOZAPINE) [Suspect]
     Indication: PERSONALITY DISORDER
     Dosage: 500 MG, QD, ORAL
     Route: 048
     Dates: start: 20051101, end: 20060104

REACTIONS (4)
  - DEHYDRATION [None]
  - DIARRHOEA [None]
  - NAUSEA [None]
  - VOMITING [None]
